FAERS Safety Report 14498549 (Version 2)
Quarter: 2018Q1

REPORT INFORMATION
  Report Type: Report from Study
  Country: AR (occurrence: AR)
  Receive Date: 20180207
  Receipt Date: 20180222
  Transmission Date: 20180509
  Serious: Yes (Hospitalization, Other)
  Sender: FDA-Public Use
  Company Number: PHHY2018AR018490

PATIENT
  Age: 52 Year
  Sex: Male

DRUGS (2)
  1. EXFORGE [Suspect]
     Active Substance: AMLODIPINE BESYLATE\VALSARTAN
     Indication: HYPERTENSION
     Dosage: 1 DF, UNK (AMLODIPINE 5, VALSARTAN 160)
     Route: 065
  2. EXFORGE [Suspect]
     Active Substance: AMLODIPINE BESYLATE\VALSARTAN
     Dosage: 1 DF, QD (10/320 (WINTER) AND 5/320 (SUMMER))
     Route: 065

REACTIONS (10)
  - Pneumothorax [Recovering/Resolving]
  - Peripheral swelling [Recovering/Resolving]
  - Injury [Unknown]
  - Pain [Unknown]
  - Metastasis [Unknown]
  - Bronchitis [Unknown]
  - Pulmonary fistula [Recovering/Resolving]
  - Dysphonia [Unknown]
  - Cough [Unknown]
  - Pulmonary mass [Recovering/Resolving]

NARRATIVE: CASE EVENT DATE: 201707
